FAERS Safety Report 13051163 (Version 1)
Quarter: 2016Q4

REPORT INFORMATION
  Report Type: Spontaneous
  Country: US (occurrence: US)
  Receive Date: 20161221
  Receipt Date: 20161221
  Transmission Date: 20170207
  Serious: Yes (Disabling)
  Sender: FDA-Public Use
  Company Number: None

PATIENT
  Age: 37 Year
  Sex: Female
  Weight: 56.7 kg

DRUGS (1)
  1. BOTOX [Suspect]
     Active Substance: ONABOTULINUMTOXINA
     Indication: TORTICOLLIS
     Dosage: OTHER FREQUENCY:EVERY 3 MONTHS;OTHER ROUTE:INJECTED INTO CERVICAL MUSCLES (NECK)?
     Dates: start: 20161202, end: 20161202

REACTIONS (2)
  - Activities of daily living impaired [None]
  - Dysphagia [None]

NARRATIVE: CASE EVENT DATE: 20161202
